FAERS Safety Report 4305619-4 (Version None)
Quarter: 2004Q1

REPORT INFORMATION
  Report Type: 
  Country: None (occurrence: None)
  Receive Date: 20040226
  Receipt Date: 20031215
  Transmission Date: 20041129
  Serious: No
  Sender: FDA-Public Use
  Company Number: US-BRISTOL-MYERS SQUIBB COMPANY-12458477

PATIENT
  Age: 53 Year
  Sex: Female
  Weight: 68 kg

DRUGS (8)
  1. ABILIFY [Suspect]
     Indication: MAJOR DEPRESSION
     Route: 048
     Dates: start: 20030606
  2. FISH OIL [Concomitant]
  3. CYTOMEL [Concomitant]
  4. IMIPRAMINE [Concomitant]
  5. ASPIRIN [Concomitant]
  6. DIFLUCAN [Concomitant]
  7. ALLEGRA [Concomitant]
  8. PROPRANOLOL HCL [Concomitant]
     Indication: TREMOR

REACTIONS (2)
  - CUTANEOUS LUPUS ERYTHEMATOSUS [None]
  - TREMOR [None]
